FAERS Safety Report 11801597 (Version 1)
Quarter: 2015Q4

REPORT INFORMATION
  Report Type: Spontaneous
  Country: US (occurrence: None)
  Receive Date: 20151203
  Receipt Date: 20151203
  Transmission Date: 20160305
  Serious: Yes (Disabling, Other)
  Sender: FDA-Public Use
  Company Number: None

PATIENT
  Age: 48 Year
  Sex: Female
  Weight: 58.06 kg

DRUGS (13)
  1. CIMZIA [Suspect]
     Active Substance: CERTOLIZUMAB PEGOL
     Indication: ARTHRALGIA
     Route: 030
     Dates: start: 20150506, end: 20150805
  2. ALBUTEROL. [Concomitant]
     Active Substance: ALBUTEROL
  3. MIDRIN [Concomitant]
     Active Substance: ACETAMINOPHEN\DICHLORALPHENAZONE\ISOMETHEPTENE
  4. VITAMIN B12 [Concomitant]
     Active Substance: CYANOCOBALAMIN
  5. ESTRACE [Concomitant]
     Active Substance: ESTRADIOL
  6. EPIPEN [Concomitant]
     Active Substance: EPINEPHRINE
  7. LINZESS [Concomitant]
     Active Substance: LINACLOTIDE
  8. MULTIVITAMINS [Concomitant]
     Active Substance: VITAMINS
  9. BENADRYL [Concomitant]
     Active Substance: DIPHENHYDRAMINE HYDROCHLORIDE
  10. TYLENOL [Concomitant]
     Active Substance: ACETAMINOPHEN
  11. KEFLEX [Concomitant]
     Active Substance: CEPHALEXIN
  12. VITAMIN D [Concomitant]
     Active Substance: CHOLECALCIFEROL
  13. CALCIUM [Concomitant]
     Active Substance: CALCIUM

REACTIONS (5)
  - Pain in extremity [None]
  - Peripheral swelling [None]
  - Arthralgia [None]
  - Foot fracture [None]
  - Fracture [None]

NARRATIVE: CASE EVENT DATE: 20151118
